FAERS Safety Report 16914820 (Version 2)
Quarter: 2019Q4

REPORT INFORMATION
  Report Type: Spontaneous
  Country: JP (occurrence: JP)
  Receive Date: 20191014
  Receipt Date: 20191128
  Transmission Date: 20200122
  Serious: Yes (Hospitalization, Other)
  Sender: FDA-Public Use
  Company Number: JP-BRISTOL-MYERS SQUIBB COMPANY-BMS-2018-089366

PATIENT
  Age: 74 Year
  Sex: Female
  Weight: 41.2 kg

DRUGS (1)
  1. OPDIVO [Suspect]
     Active Substance: NIVOLUMAB
     Indication: METASTATIC RENAL CELL CARCINOMA
     Dosage: 120 MILLIGRAM
     Route: 041
     Dates: start: 20170802, end: 20180622

REACTIONS (10)
  - Glomerulonephritis [Unknown]
  - Nail disorder [Not Recovered/Not Resolved]
  - Tumour associated fever [Recovered/Resolved]
  - Off label use [Unknown]
  - Tubulointerstitial nephritis [Not Recovered/Not Resolved]
  - Nephrotic syndrome [Unknown]
  - Palmar-plantar erythrodysaesthesia syndrome [Recovered/Resolved]
  - Hepatic function abnormal [Recovered/Resolved]
  - Somnolence [Not Recovered/Not Resolved]
  - Eczema asteatotic [Not Recovered/Not Resolved]

NARRATIVE: CASE EVENT DATE: 20170804
